FAERS Safety Report 9524230 (Version 1)
Quarter: 2013Q3

REPORT INFORMATION
  Report Type: Spontaneous
  Country: US (occurrence: None)
  Receive Date: 20130912
  Receipt Date: 20130912
  Transmission Date: 20140515
  Serious: Yes (Other)
  Sender: FDA-Public Use
  Company Number: None

PATIENT
  Sex: Female
  Weight: 68.04 kg

DRUGS (1)
  1. DEXTROMETHORPHAN [Suspect]

REACTIONS (4)
  - Vertigo [None]
  - Nausea [None]
  - Mobility decreased [None]
  - Malaise [None]
